FAERS Safety Report 9630676 (Version 1)
Quarter: 2013Q4

REPORT INFORMATION
  Report Type: Spontaneous
  Country: US (occurrence: None)
  Receive Date: 20131016
  Receipt Date: 20131016
  Transmission Date: 20140711
  Serious: Yes (Life-Threatening, Hospitalization, Disabling)
  Sender: FDA-Public Use
  Company Number: None

PATIENT
  Age: 86 Year
  Sex: Male
  Weight: 111 kg

DRUGS (3)
  1. WARFARIN [Suspect]
     Indication: ATRIAL FIBRILLATION
     Route: 048
  2. WARFARIN [Suspect]
     Indication: AORTIC VALVE REPLACEMENT
     Route: 048
  3. WARFARIN [Suspect]
     Indication: MITRAL VALVE REPLACEMENT
     Route: 048

REACTIONS (4)
  - Fall [None]
  - Head injury [None]
  - Laceration [None]
  - Haemorrhage intracranial [None]
